FAERS Safety Report 8535967-3 (Version None)
Quarter: 2012Q3

REPORT INFORMATION
  Report Type: 
  Country: None (occurrence: None)
  Receive Date: 20120725
  Receipt Date: 20120723
  Transmission Date: 20120928
  Serious: Yes (Death)
  Sender: FDA-Public Use
  Company Number: PHHY2012IN063410

PATIENT
  Sex: Male

DRUGS (1)
  1. IMATINIB MESYLATE [Suspect]
     Indication: CHRONIC MYELOID LEUKAEMIA
     Dosage: 800 MG, UNK
     Route: 048

REACTIONS (2)
  - MULTI-ORGAN FAILURE [None]
  - SEPSIS [None]
